FAERS Safety Report 10307825 (Version 1)
Quarter: 2014Q3

REPORT INFORMATION
  Report Type: Spontaneous
  Country: US (occurrence: US)
  Receive Date: 20140716
  Receipt Date: 20140716
  Transmission Date: 20150326
  Serious: No
  Sender: FDA-Public Use
  Company Number: US-BAYER-2014-106657

PATIENT
  Age: 21 Year
  Sex: Male

DRUGS (1)
  1. MIRENA [Suspect]
     Active Substance: LEVONORGESTREL

REACTIONS (3)
  - Penis injury [None]
  - Penile pain [None]
  - Genital discomfort [None]

NARRATIVE: CASE EVENT DATE: 20140712
